FAERS Safety Report 7146463-2 (Version None)
Quarter: 2010Q4

REPORT INFORMATION
  Report Type: 
  Country: None (occurrence: None)
  Receive Date: 20101208
  Receipt Date: 20101206
  Transmission Date: 20110411
  Serious: Yes (Death)
  Sender: FDA-Public Use
  Company Number: PHHY2008US37093

PATIENT
  Sex: Female

DRUGS (5)
  1. EXJADE [Suspect]
     Indication: IRON OVERLOAD
     Dosage: 1000 MG, QD
     Route: 048
     Dates: start: 20080905, end: 20080915
  2. APROXAL [Concomitant]
     Dosage: 150 MG PER DAY
     Route: 048
  3. AMBIEN [Concomitant]
     Dosage: 10 MG, QHS
     Route: 048
     Dates: start: 20081103
  4. PRILOSEC [Concomitant]
     Dosage: 20 MG PER DAY
     Route: 048
  5. TRIAMTERENE AND HYDROCHLOROTHIAZIDE [Concomitant]
     Dosage: 37.5/5.25
     Route: 048

REACTIONS (4)
  - HEPATOBILIARY DISEASE [None]
  - METASTASES TO BREAST [None]
  - METASTASES TO LIVER [None]
  - PRURITUS [None]
